FAERS Safety Report 9785950 (Version 1)
Quarter: 2013Q4

REPORT INFORMATION
  Report Type: Spontaneous
  Country: US (occurrence: None)
  Receive Date: 20131224
  Receipt Date: 20131224
  Transmission Date: 20140711
  Serious: Yes (Hospitalization)
  Sender: FDA-Public Use
  Company Number: DSU-2013-05386

PATIENT
  Age: 70 Year
  Sex: Female
  Weight: 68.04 kg

DRUGS (2)
  1. WELCHOL [Suspect]
     Indication: HYPERCHOLESTEROLAEMIA
     Dosage: 3.75 GM ( 3.75 GM, QD), PER ORAL
     Route: 048
     Dates: start: 2011
  2. EVISTA ( RALOXIFENE) ( RALOXIFENE) [Concomitant]

REACTIONS (2)
  - Intervertebral disc protrusion [None]
  - Drug intolerance [None]
